FAERS Safety Report 9988715 (Version 3)
Quarter: 2013Q4

REPORT INFORMATION
  Report Type: Spontaneous
  Country: US (occurrence: None)
  Receive Date: 20131015
  Receipt Date: 20131121
  Transmission Date: 20140711
  Serious: Yes (Other)
  Sender: FDA-Public Use
  Company Number: ADR-2013-00033

PATIENT
  Age: 47 Year
  Sex: Female

DRUGS (3)
  1. BACLOFEN INTRATHECAL [Suspect]
     Indication: PAIN
  2. DILAUDID (HYDROMORPHONE) [Suspect]
  3. BUPIVACAINE INTRATHECAL [Concomitant]

REACTIONS (27)
  - Feeling cold [None]
  - Feeling hot [None]
  - Drug withdrawal syndrome [None]
  - Sudden onset of sleep [None]
  - Overdose [None]
  - Local swelling [None]
  - Local swelling [None]
  - Pain [None]
  - Muscle spasms [None]
  - Feeling abnormal [None]
  - Somnambulism [None]
  - Hyperaesthesia [None]
  - Refusal of treatment by patient [None]
  - Arthralgia [None]
  - Myalgia [None]
  - Anxiety [None]
  - Depression [None]
  - Somnolence [None]
  - Fatigue [None]
  - Snoring [None]
  - Initial insomnia [None]
  - Constipation [None]
  - Dry skin [None]
  - Performance status decreased [None]
  - Abdominal discomfort [None]
  - Confusional state [None]
  - Burning sensation [None]
